FAERS Safety Report 9710019 (Version 1)
Quarter: 2013Q4

REPORT INFORMATION
  Report Type: Spontaneous
  Country: IT (occurrence: IT)
  Receive Date: 20131126
  Receipt Date: 20131126
  Transmission Date: 20140711
  Serious: Yes (Other)
  Sender: FDA-Public Use
  Company Number: IT-BAYER-2013-141671

PATIENT
  Age: 34 Year
  Sex: Female

DRUGS (1)
  1. YAZ [Suspect]
     Indication: ORAL CONTRACEPTION
     Dosage: DAILY DOSE 1 DF
     Route: 048
     Dates: start: 20130802, end: 20130809

REACTIONS (3)
  - Nausea [Recovering/Resolving]
  - Presyncope [Recovering/Resolving]
  - Vomiting [Recovering/Resolving]
